FAERS Safety Report 5563411-7 (Version None)
Quarter: 2007Q4

REPORT INFORMATION
  Report Type: 
  Country: None (occurrence: None)
  Receive Date: 20071213
  Receipt Date: 20071213
  Transmission Date: 20080405
  Serious: Yes (Hospitalization)
  Sender: FDA-Public Use
  Company Number: None

PATIENT
  Age: 49 Year
  Sex: Male

DRUGS (2)
  1. LISINOPRIL [Suspect]
     Indication: HYPERTENSION
     Dosage: 40MG BID PO
     Route: 048
     Dates: start: 20071101, end: 20071201
  2. TERAZOSIN HCL [Suspect]
     Dosage: 10MG HS PO
     Route: 048
     Dates: start: 20071101, end: 20071201

REACTIONS (1)
  - HYPOTENSION [None]
